FAERS Safety Report 16176381 (Version 2)
Quarter: 2019Q2

REPORT INFORMATION
  Report Type: Spontaneous
  Country: US (occurrence: US)
  Receive Date: 20190409
  Receipt Date: 20190513
  Transmission Date: 20190711
  Serious: No
  Sender: FDA-Public Use
  Company Number: US-SA-2019SA098524

PATIENT
  Age: 78 Year
  Sex: Female
  Weight: 54.43 kg

DRUGS (3)
  1. PRALUENT [Suspect]
     Active Substance: ALIROCUMAB
     Dosage: 150 MG
     Route: 058
     Dates: start: 20181029
  2. PRALUENT [Suspect]
     Active Substance: ALIROCUMAB
     Dosage: 150 MG
     Route: 058
     Dates: start: 20181113
  3. PRALUENT [Suspect]
     Active Substance: ALIROCUMAB
     Dosage: 150 MG
     Route: 058
     Dates: start: 20181210

REACTIONS (1)
  - Drug ineffective [Unknown]
